FAERS Safety Report 21063982 (Version 2)
Quarter: 2022Q4

REPORT INFORMATION
  Report Type: Report from Study
  Country: US (occurrence: US)
  Receive Date: 20220711
  Receipt Date: 20221116
  Transmission Date: 20230113
  Serious: Yes (Hospitalization, Other)
  Sender: FDA-Public Use
  Company Number: US-BRISTOL-MYERS SQUIBB COMPANY-2022-065355

PATIENT
  Age: 79 Year
  Sex: Male
  Weight: 95.254 kg

DRUGS (44)
  1. REVLIMID [Suspect]
     Active Substance: LENALIDOMIDE
     Indication: 5q minus syndrome
     Route: 048
     Dates: start: 20210219
  2. REVLIMID [Suspect]
     Active Substance: LENALIDOMIDE
     Indication: Cytogenetic abnormality
  3. REVLIMID [Suspect]
     Active Substance: LENALIDOMIDE
     Indication: Myelodysplastic syndrome
  4. PLAVIX [Concomitant]
     Active Substance: CLOPIDOGREL BISULFATE
  5. DOXYCYCLINE HYCLATE [Concomitant]
     Active Substance: DOXYCYCLINE HYCLATE
     Route: 065
  6. DOXYCYCLINE HYCLATE [Concomitant]
     Active Substance: DOXYCYCLINE HYCLATE
     Route: 065
  7. TRESIBA [Concomitant]
     Active Substance: INSULIN DEGLUDEC
     Dosage: 100/ML VIAL
  8. SUPER B COMPLEX [VITAMIN B COMPLEX] [Concomitant]
  9. ERYTHROMYCIN [Concomitant]
     Active Substance: ERYTHROMYCIN
     Dosage: 5 MG/GRAM OINTMENT
  10. LOVASTATIN [Concomitant]
     Active Substance: LOVASTATIN
     Route: 065
  11. TAMSULOSIN HYDROCHLORIDE [Concomitant]
     Active Substance: TAMSULOSIN HYDROCHLORIDE
     Route: 065
  12. LEVOTHYROXINE [Concomitant]
     Active Substance: LEVOTHYROXINE
  13. LEVOTHYROXINE [Concomitant]
     Active Substance: LEVOTHYROXINE
  14. NIZORAL A-D [Concomitant]
     Active Substance: KETOCONAZOLE
  15. ALLOPURINOL SODIUM [Concomitant]
     Active Substance: ALLOPURINOL SODIUM
     Route: 065
  16. ALLOPURINOL SODIUM [Concomitant]
     Active Substance: ALLOPURINOL SODIUM
     Route: 065
  17. LORATADINE [Concomitant]
     Active Substance: LORATADINE
  18. VITAMIN D3 [Concomitant]
     Active Substance: CHOLECALCIFEROL
  19. VITAMIN B12 [Concomitant]
     Active Substance: CYANOCOBALAMIN
  20. VITAMIN B12 [Concomitant]
     Active Substance: CYANOCOBALAMIN
  21. PRIMIDONE [Concomitant]
     Active Substance: PRIMIDONE
     Route: 065
  22. VITAMIN C FLAVOUR [Concomitant]
  23. VITAMIN C FLAVOUR [Concomitant]
  24. CVS COQ-10 [Concomitant]
     Route: 065
  25. CVS COQ-10 [Concomitant]
     Route: 065
  26. ASPIRIN [Concomitant]
     Active Substance: ASPIRIN
  27. TRIAMCINOLONE ACETONIDE [Concomitant]
     Active Substance: TRIAMCINOLONE ACETONIDE
     Route: 065
  28. MAGNESIUM [Concomitant]
     Active Substance: MAGNESIUM
  29. MAGNESIUM [Concomitant]
     Active Substance: MAGNESIUM
  30. AMIODARONE HYDROCHLORIDE [Concomitant]
     Active Substance: AMIODARONE HYDROCHLORIDE
  31. AMIODARONE HYDROCHLORIDE [Concomitant]
     Active Substance: AMIODARONE HYDROCHLORIDE
  32. EPINEPHRINE [Concomitant]
     Active Substance: EPINEPHRINE
     Dosage: 0.15 MG/0.3 AUTO INJ
  33. VITAMINS NOS [Concomitant]
     Active Substance: VITAMINS
     Route: 065
  34. MELATONIN [Concomitant]
     Active Substance: MELATONIN
  35. MELATONIN [Concomitant]
     Active Substance: MELATONIN
  36. ASPIRIN [Concomitant]
     Active Substance: ASPIRIN
  37. FLOMAX [Concomitant]
     Active Substance: TAMSULOSIN HYDROCHLORIDE
  38. FOLIC ACID [Concomitant]
     Active Substance: FOLIC ACID
  39. CLARITIN-D NOS [Concomitant]
     Active Substance: LORATADINE\PSEUDOEPHEDRINE SULFATE
     Dosage: 12 HOUR
  40. LUTEIN [Concomitant]
     Active Substance: LUTEIN
  41. LYSINE [Concomitant]
     Active Substance: LYSINE
  42. TYLENOL [Concomitant]
     Active Substance: ACETAMINOPHEN
  43. GABAPENTIN [Concomitant]
     Active Substance: GABAPENTIN
  44. BENADRYL [Concomitant]
     Active Substance: DIPHENHYDRAMINE HYDROCHLORIDE

REACTIONS (4)
  - Thrombocytopenia [Unknown]
  - Chronic kidney disease [Unknown]
  - Electrolyte imbalance [Unknown]
  - Off label use [Unknown]

NARRATIVE: CASE EVENT DATE: 20221001
